FAERS Safety Report 7911143-X (Version None)
Quarter: 2011Q4

REPORT INFORMATION
  Report Type: 
  Country: None (occurrence: None)
  Receive Date: 20111109
  Receipt Date: 20111101
  Transmission Date: 20120403
  Serious: Yes (Disabling)
  Sender: FDA-Public Use
  Company Number: AUR-APL-2011-04718

PATIENT
  Age: 85 Year
  Sex: Female

DRUGS (3)
  1. ALENDRONATE SODIUM [Concomitant]
  2. FELODIPINE [Concomitant]
  3. SIMVASTATIN [Suspect]
     Indication: PRODUCT USED FOR UNKNOWN INDICATION
     Dosage: 40 MG (40 MG, 1 IN 1 D), ORAL
     Route: 048
     Dates: end: 20110726

REACTIONS (1)
  - HYPOKALAEMIA [None]
